FAERS Safety Report 19212958 (Version 1)
Quarter: 2021Q2

REPORT INFORMATION
  Report Type: Spontaneous
  Country: US (occurrence: US)
  Receive Date: 20210504
  Receipt Date: 20210504
  Transmission Date: 20210717
  Serious: No
  Sender: FDA-Public Use
  Company Number: US-ROCHE-2591502

PATIENT
  Age: 87 Year
  Sex: Female
  Weight: 67.19 kg

DRUGS (4)
  1. AVASTIN [Suspect]
     Active Substance: BEVACIZUMAB
     Indication: NEOVASCULAR AGE-RELATED MACULAR DEGENERATION
     Route: 031
     Dates: start: 201906, end: 201912
  2. LUCENTIS [Suspect]
     Active Substance: RANIBIZUMAB
     Indication: NEOVASCULAR AGE-RELATED MACULAR DEGENERATION
     Dosage: YES
     Route: 031
     Dates: start: 201912
  3. LUCENTIS [Suspect]
     Active Substance: RANIBIZUMAB
     Dosage: YES
     Route: 031
     Dates: start: 2020
  4. AVASTIN [Suspect]
     Active Substance: BEVACIZUMAB
     Route: 031
     Dates: start: 20200512

REACTIONS (10)
  - Visual impairment [Not Recovered/Not Resolved]
  - Drug ineffective [Unknown]
  - Rhinitis [Recovered/Resolved]
  - Off label use [Unknown]
  - Vitreous floaters [Recovered/Resolved]
  - Pain [Recovered/Resolved]
  - Vision blurred [Not Recovered/Not Resolved]
  - Eye swelling [Recovered/Resolved]
  - Lacrimation increased [Recovered/Resolved]
  - Intentional product use issue [Unknown]

NARRATIVE: CASE EVENT DATE: 202003
